FAERS Safety Report 6415488-4 (Version None)
Quarter: 2009Q4

REPORT INFORMATION
  Report Type: 
  Country: None (occurrence: None)
  Receive Date: 20091027
  Receipt Date: 20091021
  Transmission Date: 20100525
  Serious: Yes (Other)
  Sender: FDA-Public Use
  Company Number: PT-JNJFOC-20091006587

PATIENT
  Age: 44 Year
  Sex: Female

DRUGS (2)
  1. TAVANIC [Suspect]
     Indication: URINARY TRACT INFECTION
     Route: 048
     Dates: start: 20090905, end: 20090907
  2. NATALIZUMAB [Concomitant]
     Indication: MULTIPLE SCLEROSIS
     Route: 042
     Dates: start: 20081001

REACTIONS (4)
  - ASTHENIA [None]
  - DECREASED APPETITE [None]
  - DIZZINESS [None]
  - PALLOR [None]
